FAERS Safety Report 18936655 (Version 8)
Quarter: 2022Q4

REPORT INFORMATION
  Report Type: Other
  Country: US (occurrence: None)
  Receive Date: 20210225
  Receipt Date: 20221018
  Transmission Date: 20230113
  Serious: Yes (Hospitalization, Other)
  Sender: FDA-Public Use
  Company Number: US-ROCHE-2770810

PATIENT
  Age: 45 Year
  Sex: Female
  Weight: 113.95 kg

DRUGS (25)
  1. OCREVUS [Suspect]
     Active Substance: OCRELIZUMAB
     Indication: Relapsing-remitting multiple sclerosis
     Dosage: ONGOING: NO
     Route: 042
     Dates: start: 201903, end: 202005
  2. OCREVUS [Suspect]
     Active Substance: OCRELIZUMAB
     Dosage: VIAL?300 MG DAY 1 + DAY 15
     Route: 042
     Dates: start: 20210330
  3. OCREVUS [Suspect]
     Active Substance: OCRELIZUMAB
     Route: 042
     Dates: start: 202111
  4. RITUXAN [Suspect]
     Active Substance: RITUXIMAB
     Indication: Relapsing-remitting multiple sclerosis
     Route: 065
     Dates: start: 2012, end: 2015
  5. AZITHROMYCIN [Suspect]
     Active Substance: AZITHROMYCIN
     Indication: Product used for unknown indication
     Route: 065
  6. INTERFERON [Suspect]
     Active Substance: INTERFERON
     Indication: Product used for unknown indication
     Route: 065
  7. LYRICA [Suspect]
     Active Substance: PREGABALIN
     Indication: Product used for unknown indication
     Route: 065
  8. AUGMENTIN [Suspect]
     Active Substance: AMOXICILLIN\CLAVULANATE POTASSIUM
     Indication: Product used for unknown indication
     Route: 065
     Dates: start: 202004
  9. DIAZEPAM [Suspect]
     Active Substance: DIAZEPAM
     Indication: Dystonia
     Route: 048
     Dates: start: 2014
  10. DIAZEPAM [Suspect]
     Active Substance: DIAZEPAM
     Indication: Clonus
  11. METFORMIN [Concomitant]
     Active Substance: METFORMIN HYDROCHLORIDE
     Route: 048
     Dates: start: 1996
  12. PANTOPRAZOLE [Concomitant]
     Active Substance: PANTOPRAZOLE
     Indication: Gastrooesophageal reflux disease
     Route: 048
     Dates: start: 2006
  13. FLOMAX CAPSULE [Concomitant]
     Indication: Neurogenic bladder
     Route: 048
     Dates: start: 2009
  14. METOPROLOL [Concomitant]
     Active Substance: METOPROLOL
     Indication: Tachycardia
     Route: 048
     Dates: start: 2012
  15. LEVOTHYROXINE [Concomitant]
     Active Substance: LEVOTHYROXINE
     Indication: Hypopituitarism
     Route: 048
     Dates: start: 2017
  16. HYDROCORTISONE [Concomitant]
     Active Substance: HYDROCORTISONE
     Indication: Adrenal insufficiency
     Route: 048
     Dates: start: 2017
  17. ESTROGENS [Concomitant]
     Active Substance: ESTROGENS
     Dates: start: 2017
  18. PROGESTERONE [Concomitant]
     Active Substance: PROGESTERONE
     Indication: Hypopituitarism
     Route: 048
     Dates: start: 2017
  19. VITAMIN D3 [Concomitant]
     Active Substance: CHOLECALCIFEROL
     Dosage: 3 TIMES A WEEK EVERY OTHER WEEK; ;ONGOING: YES
     Route: 048
     Dates: start: 2020
  20. VITAMIN D3 [Concomitant]
     Active Substance: CHOLECALCIFEROL
     Dosage: 2 TIMES A WEEK EVERY OTHER WEEK
     Route: 048
  21. HYDROMORPHONE [Concomitant]
     Active Substance: HYDROMORPHONE
     Indication: Pain
     Dosage: MAY TAKE UP TO EVERY 4 HOURS AS NEEDED ;ONGOING: YES
     Route: 048
     Dates: start: 2014
  22. ONDANSETRON HYDROCHLORIDE [Concomitant]
     Active Substance: ONDANSETRON HYDROCHLORIDE
     Indication: Nausea
     Route: 060
     Dates: start: 2012
  23. REGLAN [Concomitant]
     Active Substance: METOCLOPRAMIDE HYDROCHLORIDE
     Indication: Impaired gastric emptying
     Dosage: AS NEEDED; ONLY TAKES 1-2 TIMES A DAY ;ONGOING: YES
     Route: 048
     Dates: start: 2012, end: 2015
  24. REGLAN [Concomitant]
     Active Substance: METOCLOPRAMIDE HYDROCHLORIDE
     Dates: start: 2018
  25. BACLOFEN [Concomitant]
     Active Substance: BACLOFEN
     Indication: Muscle spasms
     Dosage: PUMP
     Dates: start: 2014

REACTIONS (33)
  - Vasculitis [Recovered/Resolved]
  - Cardiac valve disease [Unknown]
  - Off label use [Unknown]
  - Rash [Unknown]
  - Diarrhoea [Recovered/Resolved]
  - Abdominal pain [Recovered/Resolved]
  - Pyrexia [Recovered/Resolved]
  - Chills [Recovered/Resolved]
  - Chest pain [Recovered/Resolved]
  - Fatigue [Recovered/Resolved]
  - Dyspnoea [Recovered/Resolved]
  - Candida infection [Recovered/Resolved]
  - Hyponatraemia [Recovered/Resolved]
  - Hypopituitarism [Not Recovered/Not Resolved]
  - Sinusitis [Unknown]
  - Impaired healing [Unknown]
  - Skin laceration [Unknown]
  - Dry skin [Unknown]
  - Infection [Unknown]
  - Fear [Unknown]
  - COVID-19 [Unknown]
  - Gait disturbance [Unknown]
  - Blindness [Unknown]
  - Loss of proprioception [Unknown]
  - Aphasia [Unknown]
  - Cognitive disorder [Unknown]
  - Bedridden [Unknown]
  - Muscle spasms [Unknown]
  - Memory impairment [Not Recovered/Not Resolved]
  - Multiple sclerosis [Not Recovered/Not Resolved]
  - Dental caries [Not Recovered/Not Resolved]
  - Myalgia [Not Recovered/Not Resolved]
  - Blood immunoglobulin G decreased [Not Recovered/Not Resolved]

NARRATIVE: CASE EVENT DATE: 20120101
